FAERS Safety Report 7949302-2 (Version None)
Quarter: 2011Q4

REPORT INFORMATION
  Report Type: 
  Country: None (occurrence: None)
  Receive Date: 20111130
  Receipt Date: 20111128
  Transmission Date: 20120403
  Serious: Yes (Death)
  Sender: FDA-Public Use
  Company Number: US-B.I. PHARMACEUTICALS,INC./RIDGEFIELD-2011-BP-26946BP

PATIENT
  Sex: Male

DRUGS (6)
  1. BENADRYL [Concomitant]
  2. METOPROLOL TARTRATE [Concomitant]
  3. FLOMAX [Concomitant]
  4. MULTIVITAMIN [Concomitant]
  5. FISH OIL [Concomitant]
  6. PRADAXA [Suspect]
     Indication: ATRIAL FIBRILLATION
     Dosage: 300 MG
     Dates: start: 20110607

REACTIONS (1)
  - CEREBRAL HAEMORRHAGE [None]
